FAERS Safety Report 9284923 (Version 1)
Quarter: 2013Q2

REPORT INFORMATION
  Report Type: Spontaneous
  Country: MY (occurrence: MY)
  Receive Date: 20130513
  Receipt Date: 20130513
  Transmission Date: 20140414
  Serious: Yes (Other)
  Sender: FDA-Public Use
  Company Number: MY-RANBAXY-2013R3-68678

PATIENT
  Age: 76 Year
  Sex: Male

DRUGS (4)
  1. RIOMET [Suspect]
     Indication: DIABETES MELLITUS
     Dosage: 1 G DAILY
     Route: 048
  2. VAMLO [Suspect]
     Indication: HYPERTENSION
     Dosage: 10 MG DAILY
     Route: 048
  3. CAPTOHEXAL [Suspect]
     Indication: HYPERTENSION
     Dosage: 150 MG DAILY
     Route: 048
  4. LOVASTATIN [Suspect]
     Indication: HYPERLIPIDAEMIA
     Dosage: 20 MG DAILY
     Route: 048

REACTIONS (1)
  - Dermatitis exfoliative [Unknown]
